FAERS Safety Report 24664530 (Version 1)
Quarter: 2024Q4

REPORT INFORMATION
  Report Type: Spontaneous
  Country: US (occurrence: None)
  Receive Date: 20241125
  Receipt Date: 20241125
  Transmission Date: 20250115
  Serious: Yes (Hospitalization)
  Sender: Public
  Company Number: None

PATIENT
  Age: 82 Year
  Sex: Male

DRUGS (2)
  1. ENFORTUMAB [Suspect]
     Active Substance: ENFORTUMAB
     Indication: Bladder cancer
     Dosage: OTHER FREQUENCY : ONE TIME USE;?
     Route: 042
  2. PEMBROLIZUMAB [Suspect]
     Active Substance: PEMBROLIZUMAB

REACTIONS (6)
  - Wound [None]
  - Blood pressure increased [None]
  - Blister [None]
  - Pain in extremity [None]
  - Paraesthesia [None]
  - Erythema [None]
